FAERS Safety Report 4472136-0 (Version None)
Quarter: 2004Q4

REPORT INFORMATION
  Report Type: 
  Country: None (occurrence: None)
  Receive Date: 20041012
  Receipt Date: 20040728
  Transmission Date: 20050328
  Serious: Yes (Death)
  Sender: FDA-Public Use
  Company Number: GB-MERCK-0407GBR00279

PATIENT
  Age: 40 Year
  Sex: Female

DRUGS (1)
  1. PROSCAR [Suspect]
     Route: 065
     Dates: start: 20040101, end: 20040101

REACTIONS (2)
  - ABORTION SPONTANEOUS [None]
  - DRUG EXPOSURE DURING PREGNANCY [None]
